FAERS Safety Report 15626160 (Version 2)
Quarter: 2018Q4

REPORT INFORMATION
  Report Type: Spontaneous
  Country: JP (occurrence: JP)
  Receive Date: 20181116
  Receipt Date: 20181119
  Transmission Date: 20190205
  Serious: Yes (Hospitalization, Other)
  Sender: FDA-Public Use
  Company Number: JP-SA-2018SA307133

PATIENT
  Age: 65 Year
  Sex: Female

DRUGS (3)
  1. FLUOROURACIL. [Suspect]
     Active Substance: FLUOROURACIL
     Indication: SQUAMOUS CELL CARCINOMA
     Route: 065
  2. TAXOTERE [Suspect]
     Active Substance: DOCETAXEL
     Indication: SQUAMOUS CELL CARCINOMA
     Route: 041
  3. CISPLATIN. [Suspect]
     Active Substance: CISPLATIN
     Indication: SQUAMOUS CELL CARCINOMA
     Route: 065

REACTIONS (9)
  - Productive cough [Unknown]
  - Gait inability [Unknown]
  - Pyrexia [Unknown]
  - Feeding disorder [Unknown]
  - Cough [Unknown]
  - Inflammation [Unknown]
  - General physical health deterioration [Unknown]
  - Pulmonary fistula [Unknown]
  - Nutritional condition abnormal [Unknown]
